FAERS Safety Report 8557564-6 (Version None)
Quarter: 2012Q3

REPORT INFORMATION
  Report Type: 
  Country: None (occurrence: None)
  Receive Date: 20120801
  Receipt Date: 20120725
  Transmission Date: 20120928
  Serious: Yes (Hospitalization)
  Sender: FDA-Public Use
  Company Number: JP-BAYER-2012-074715

PATIENT
  Age: 73 Year
  Sex: Female

DRUGS (3)
  1. WARFARIN POTASSIUM [Suspect]
     Route: 048
  2. ASPIRIN [Suspect]
     Route: 048
  3. PREDNISOLONE [Suspect]
     Route: 048

REACTIONS (2)
  - GASTROINTESTINAL TELANGIECTASIA [None]
  - SMALL INTESTINAL HAEMORRHAGE [None]
